FAERS Safety Report 18100446 (Version 5)
Quarter: 2020Q4

REPORT INFORMATION
  Report Type: Spontaneous
  Country: FR (occurrence: FR)
  Receive Date: 20200731
  Receipt Date: 20201013
  Transmission Date: 20210113
  Serious: Yes (Death, Life-Threatening, Hospitalization, Other)
  Sender: FDA-Public Use
  Company Number: FR-BAUSCH-BL-2020-021322

PATIENT
  Age: 57 Year
  Sex: Male
  Weight: 59 kg

DRUGS (76)
  1. IXAZOMIB [Suspect]
     Active Substance: IXAZOMIB
     Indication: PLASMA CELL MYELOMA
     Route: 065
  2. IXAZOMIB [Suspect]
     Active Substance: IXAZOMIB
     Route: 065
  3. HYDROCORTISONE. [Concomitant]
     Active Substance: HYDROCORTISONE
     Route: 065
  4. FUROSEMIDE. [Concomitant]
     Active Substance: FUROSEMIDE
     Dosage: 500 OT, 1/4-0-0
     Route: 065
  5. BICARBONATE [Concomitant]
     Active Substance: SODIUM BICARBONATE
     Dosage: 9 MG, TID
  6. ZELITREX [Concomitant]
     Active Substance: VALACYCLOVIR HYDROCHLORIDE
     Route: 065
  7. CALCIDIA [Concomitant]
     Active Substance: CALCIUM CARBONATE
     Indication: PRODUCT USED FOR UNKNOWN INDICATION
     Dosage: 1 DF, QD
     Route: 065
  8. DOLIPRANE [Concomitant]
     Active Substance: ACETAMINOPHEN
     Indication: PRODUCT USED FOR UNKNOWN INDICATION
     Dosage: 1 G, 3/DAY IF IN PAIN
  9. BINOCRIT [Concomitant]
     Active Substance: ERYTHROPOIETIN
     Route: 065
  10. REVLIMID [Suspect]
     Active Substance: LENALIDOMIDE
     Indication: PLASMA CELL MYELOMA
     Route: 065
     Dates: start: 20180330
  11. IXAZOMIB [Suspect]
     Active Substance: IXAZOMIB
     Route: 065
  12. BORTEZOMIB. [Suspect]
     Active Substance: BORTEZOMIB
     Indication: PLASMA CELL MYELOMA
     Route: 065
  13. PANOBINOSTAT [Suspect]
     Active Substance: PANOBINOSTAT
     Indication: PLASMA CELL MYELOMA
     Route: 065
  14. AMLODIPINE [Concomitant]
     Active Substance: AMLODIPINE BESYLATE
     Indication: PRODUCT USED FOR UNKNOWN INDICATION
     Dosage: 5 MG, QD (1-0-0)
     Route: 065
  15. BICARBONATE [Concomitant]
     Active Substance: SODIUM BICARBONATE
     Indication: PRODUCT USED FOR UNKNOWN INDICATION
     Route: 065
  16. BICARBONATE [Concomitant]
     Active Substance: SODIUM BICARBONATE
     Dosage: 1 MG, TID
     Route: 065
  17. SODIUM HYDROGEN CARBONATE [Concomitant]
     Active Substance: SODIUM BICARBONATE
     Indication: PRODUCT USED FOR UNKNOWN INDICATION
     Dosage: 1 G, TID
  18. TAVANIC [Concomitant]
     Active Substance: LEVOFLOXACIN
     Dosage: 250 MG, 1 DAY OUT OF 2, ODD DAYS
     Route: 065
  19. AMLOR [Concomitant]
     Active Substance: AMLODIPINE BESYLATE
     Dosage: 5 MG, QD (IN THE MORNING)
     Route: 065
  20. APROVEL [Concomitant]
     Active Substance: IRBESARTAN
     Route: 065
  21. LOVENOX [Concomitant]
     Active Substance: ENOXAPARIN SODIUM
     Dosage: 0.2 OT, QD
     Route: 065
  22. CODEINE PHOSPHATE;PARACETAMOL [Concomitant]
     Active Substance: ACETAMINOPHEN\CODEINE PHOSPHATE
     Route: 065
  23. REVLIMID [Suspect]
     Active Substance: LENALIDOMIDE
     Route: 065
     Dates: start: 20180411
  24. REVLIMID [Suspect]
     Active Substance: LENALIDOMIDE
     Route: 065
     Dates: end: 20180504
  25. REVLIMID [Suspect]
     Active Substance: LENALIDOMIDE
     Route: 065
     Dates: start: 20180608
  26. HYDROCORTISONE. [Concomitant]
     Active Substance: HYDROCORTISONE
     Dosage: 25 MG, Q6H
     Route: 042
     Dates: start: 201707
  27. TAVANIC [Concomitant]
     Active Substance: LEVOFLOXACIN
     Dosage: 1 DAY OUT OF 2, ODD DAYS
     Route: 065
  28. CODEINE PHOSPHATE [Concomitant]
     Active Substance: CODEINE PHOSPHATE
     Indication: PRODUCT USED FOR UNKNOWN INDICATION
     Route: 065
  29. CYCLOPHOSPHAMIDE. [Suspect]
     Active Substance: CYCLOPHOSPHAMIDE
     Indication: PLASMA CELL MYELOMA
     Dosage: 250 MG (5 TABLETS) AT 12 PM AND 7 PM ON FRIDAY THEN 10 TABLETS
     Route: 065
  30. GABAPENTIN. [Concomitant]
     Active Substance: GABAPENTIN
     Indication: PRODUCT USED FOR UNKNOWN INDICATION
  31. BICARBONATE [Concomitant]
     Active Substance: SODIUM BICARBONATE
     Dosage: 3 OT, TID
     Route: 065
  32. APIDRA [Concomitant]
     Active Substance: INSULIN GLULISINE
     Indication: PRODUCT USED FOR UNKNOWN INDICATION
     Dosage: 30 IU, TID  (IN THE MORNING, AT NOON AND NIGHT)
     Route: 058
  33. TAVANIC [Concomitant]
     Active Substance: LEVOFLOXACIN
     Indication: ANTIBIOTIC PROPHYLAXIS
     Route: 065
  34. TAVANIC [Concomitant]
     Active Substance: LEVOFLOXACIN
     Dosage: 500 MG, IN THE MORNING AND AT NIGHT
     Route: 065
  35. TAVANIC [Concomitant]
     Active Substance: LEVOFLOXACIN
     Dosage: 1000 MG, (IN MORNING AND IN NIGHT)
     Route: 065
     Dates: start: 20170823
  36. LANSOPRAZOLE. [Concomitant]
     Active Substance: LANSOPRAZOLE
     Dosage: 15 UNITS UNKNOWN, QD, (1-0-0)
  37. BINOCRIT [Concomitant]
     Active Substance: ERYTHROPOIETIN
     Indication: PRODUCT USED FOR UNKNOWN INDICATION
     Dosage: 1 DF, WEEKLY
  38. CARFILZOMIB [Suspect]
     Active Substance: CARFILZOMIB
     Route: 065
     Dates: start: 20180319, end: 20190330
  39. REVLIMID [Suspect]
     Active Substance: LENALIDOMIDE
     Route: 065
     Dates: start: 20180807, end: 20181227
  40. HYDROCORTISONE. [Concomitant]
     Active Substance: HYDROCORTISONE
  41. HYDROCORTISONE. [Concomitant]
     Active Substance: HYDROCORTISONE
     Dosage: UNK, BID
     Route: 065
     Dates: start: 2017
  42. FUROSEMIDE. [Concomitant]
     Active Substance: FUROSEMIDE
     Indication: PRODUCT USED FOR UNKNOWN INDICATION
     Route: 065
  43. ZELITREX [Concomitant]
     Active Substance: VALACYCLOVIR HYDROCHLORIDE
     Indication: PRODUCT USED FOR UNKNOWN INDICATION
     Dosage: 500 MG, 1 DAY OUT OF 2 (EVEN DAYS)
     Route: 065
  44. TOPALGIC [Concomitant]
     Indication: PAIN
     Dosage: 50 MG, X 4/DAY IF IN PAIN
     Route: 065
  45. SODIUM BICARBONATE. [Concomitant]
     Active Substance: SODIUM BICARBONATE
     Dosage: 1 G, X 4 PER DAY
  46. LOVENOX [Concomitant]
     Active Substance: ENOXAPARIN SODIUM
     Indication: PRODUCT USED FOR UNKNOWN INDICATION
     Dosage: UNK, QD
     Route: 065
  47. HYDROCORTISONE. [Concomitant]
     Active Substance: HYDROCORTISONE
     Indication: PRODUCT USED FOR UNKNOWN INDICATION
     Route: 065
  48. HYDROCORTISONE. [Concomitant]
     Active Substance: HYDROCORTISONE
     Dosage: 40 MG IN MORNING, 20 MG IN NOON
     Route: 065
  49. BICARBONATE [Concomitant]
     Active Substance: SODIUM BICARBONATE
     Route: 065
  50. ORACILLINE [Concomitant]
     Active Substance: PENICILLIN V
     Indication: PRODUCT USED FOR UNKNOWN INDICATION
  51. APROVEL [Concomitant]
     Active Substance: IRBESARTAN
     Indication: PRODUCT USED FOR UNKNOWN INDICATION
     Dosage: 75 MG, QD 1 TABLET IN THE MORNING
     Route: 065
  52. CODEINE PHOSPHATE;PARACETAMOL [Concomitant]
     Active Substance: ACETAMINOPHEN\CODEINE PHOSPHATE
     Dosage: 3000 OT
     Route: 065
  53. CARFILZOMIB [Suspect]
     Active Substance: CARFILZOMIB
     Indication: PLASMA CELL MYELOMA
     Route: 065
  54. CARFILZOMIB [Suspect]
     Active Substance: CARFILZOMIB
     Dosage: 112 MG, ON DAYS 1, 2, 8, 9, 15 AND 16
     Route: 065
  55. CARFILZOMIB [Suspect]
     Active Substance: CARFILZOMIB
     Route: 065
  56. REVLIMID [Suspect]
     Active Substance: LENALIDOMIDE
     Route: 065
     Dates: start: 20180425
  57. HYDROCORTISONE. [Concomitant]
     Active Substance: HYDROCORTISONE
     Route: 065
  58. AMOXICILLIN. [Concomitant]
     Active Substance: AMOXICILLIN
     Indication: PRODUCT USED FOR UNKNOWN INDICATION
     Route: 065
  59. SODIUM HYDROGEN CARBONATE [Concomitant]
     Active Substance: SODIUM BICARBONATE
     Dosage: 3 G, TID
     Route: 065
  60. SODIUM HYDROGEN CARBONATE [Concomitant]
     Active Substance: SODIUM BICARBONATE
     Route: 065
  61. LANTUS [Concomitant]
     Active Substance: INSULIN GLARGINE
     Indication: PRODUCT USED FOR UNKNOWN INDICATION
     Dosage: 40 IU, QD (AT NIGHT)
     Route: 058
  62. VALACICLOVIR [Concomitant]
     Active Substance: VALACYCLOVIR HYDROCHLORIDE
     Indication: PRODUCT USED FOR UNKNOWN INDICATION
     Dosage: 500 MG, IN THE MORNING OF EVEN DAYS
     Route: 065
  63. SODIUM BICARBONATE. [Concomitant]
     Active Substance: SODIUM BICARBONATE
     Indication: PRODUCT USED FOR UNKNOWN INDICATION
     Route: 065
  64. DEXAMETHASONE. [Suspect]
     Active Substance: DEXAMETHASONE
     Indication: PLASMA CELL MYELOMA
     Route: 065
  65. CARFILZOMIB [Suspect]
     Active Substance: CARFILZOMIB
     Route: 065
  66. HYDROCORTISONE. [Concomitant]
     Active Substance: HYDROCORTISONE
     Dosage: 10 MG, BID (10 MG, 2-1-0)
     Route: 065
  67. TRIATEC [RAMIPRIL] [Concomitant]
     Active Substance: RAMIPRIL
     Indication: PRODUCT USED FOR UNKNOWN INDICATION
     Dosage: 1.25 MG, BID IN THE MORNING AND AT NIGHT
     Route: 065
  68. CEFTRIAXONE. [Concomitant]
     Active Substance: CEFTRIAXONE
     Indication: PRODUCT USED FOR UNKNOWN INDICATION
     Route: 042
     Dates: start: 20170822, end: 20170822
  69. SODIUM HYDROGEN CARBONATE [Concomitant]
     Active Substance: SODIUM BICARBONATE
     Dosage: 1 G, QID
     Route: 065
  70. SODIUM HYDROGEN CARBONATE [Concomitant]
     Active Substance: SODIUM BICARBONATE
     Route: 065
  71. LANSOPRAZOLE. [Concomitant]
     Active Substance: LANSOPRAZOLE
     Indication: PRODUCT USED FOR UNKNOWN INDICATION
     Dosage: 15 MG, QD (AT NIGHT)
     Route: 065
  72. AMLOR [Concomitant]
     Active Substance: AMLODIPINE BESYLATE
     Indication: PRODUCT USED FOR UNKNOWN INDICATION
     Dosage: 10 MG, QD (IN THE MORNING)
     Route: 065
  73. CALCIDIA [Concomitant]
     Active Substance: CALCIUM CARBONATE
     Dosage: QD (1-0-0)
     Route: 065
  74. SODIUM BICARBONATE. [Concomitant]
     Active Substance: SODIUM BICARBONATE
     Dosage: 1 G, TID (1 G, X 3/DAY)
  75. BINOCRIT [Concomitant]
     Active Substance: ERYTHROPOIETIN
     Dosage: 3000 OT
     Route: 065
  76. CODEINE PHOSPHATE;PARACETAMOL [Concomitant]
     Active Substance: ACETAMINOPHEN\CODEINE PHOSPHATE
     Indication: PRODUCT USED FOR UNKNOWN INDICATION

REACTIONS (24)
  - Septic shock [Unknown]
  - Arthralgia [Unknown]
  - Dyspnoea exertional [Recovered/Resolved]
  - Respiratory distress [Recovered/Resolved]
  - Haemoptysis [Recovering/Resolving]
  - Pancytopenia [Recovering/Resolving]
  - Respiratory failure [Unknown]
  - Spinal pain [Unknown]
  - Cough [Recovered/Resolved]
  - Thrombotic microangiopathy [Recovered/Resolved]
  - Tremor [Recovered/Resolved]
  - Pain in extremity [Unknown]
  - Pleural effusion [Recovering/Resolving]
  - Pericarditis [Recovered/Resolved]
  - Cytopenia [Recovered/Resolved]
  - Bronchial haemorrhage [Recovering/Resolving]
  - Oedema peripheral [Not Recovered/Not Resolved]
  - Acute kidney injury [Unknown]
  - Diarrhoea [Recovering/Resolving]
  - Morganella infection [Recovered/Resolved]
  - Therapeutic response decreased [Unknown]
  - Plasma cell myeloma [Fatal]
  - Escherichia infection [Unknown]
  - Klebsiella infection [Recovering/Resolving]

NARRATIVE: CASE EVENT DATE: 2016
